FAERS Safety Report 7416198-7 (Version None)
Quarter: 2011Q2

REPORT INFORMATION
  Report Type: 
  Country: None (occurrence: None)
  Receive Date: 20110406
  Receipt Date: 20110323
  Transmission Date: 20111010
  Serious: Yes (Hospitalization, Other)
  Sender: FDA-Public Use
  Company Number: 2011MA000044

PATIENT
  Age: 26 Year
  Sex: Female

DRUGS (2)
  1. IMPLANON [Suspect]
     Indication: PRODUCT USED FOR UNKNOWN INDICATION
     Dates: start: 20071116
  2. ACYCLOVIR [Suspect]
     Indication: PRODUCT USED FOR UNKNOWN INDICATION

REACTIONS (6)
  - HAEMORRHAGE [None]
  - PREGNANCY WITH IMPLANT CONTRACEPTIVE [None]
  - PAIN [None]
  - PELVIC PAIN [None]
  - ECTOPIC PREGNANCY [None]
  - DRUG EXPOSURE DURING PREGNANCY [None]
